FAERS Safety Report 8518605-5 (Version None)
Quarter: 2012Q3

REPORT INFORMATION
  Report Type: 
  Country: None (occurrence: None)
  Receive Date: 20120718
  Receipt Date: 20110630
  Transmission Date: 20120928
  Serious: No
  Sender: FDA-Public Use
  Company Number: US-BRISTOL-MYERS SQUIBB COMPANY-15676935

PATIENT
  Age: 68 Year
  Sex: Female
  Weight: 73 kg

DRUGS (14)
  1. COUMADIN [Suspect]
     Indication: PULMONARY EMBOLISM
     Dosage: 1DF:2.5MG,5 MG 2.5MG:TUE,THR,SUN 5MG:ALL OTHER DAYS
     Dates: start: 20110107
  2. LOTREL [Concomitant]
     Dosage: 1DF:1 CAPS(5-10MG)
  3. XANAX [Concomitant]
     Indication: ANXIETY
     Dosage: 1DF:1 TABS(2 MG) Q4-6 HRS PRN
  4. LORTAB [Concomitant]
     Dosage: LORTAB 10 1DF:1 TABS
  5. METHADONE HCL [Concomitant]
     Dosage: 2 TABS
  6. ACTOS [Concomitant]
     Dosage: 1DF:1 TABS(45 MG)
  7. SOMA [Concomitant]
     Dosage: 1DF:1 TABS(350 MG)
  8. CATAPRES [Concomitant]
     Dosage: 1DF:1 TABS(0.1MG)
  9. SYNTHROID [Concomitant]
     Dosage: 1DF: 1 TABS(150 MCG)
  10. NEURONTIN [Concomitant]
     Dosage: 1DF:1 CAPS(300MG)
  11. WARFARIN SODIUM [Concomitant]
     Dosage: 1DF: 1 TABS(5 MG)
  12. VENLAFAXINE HCL [Concomitant]
     Dosage: 1DF:1 CAPS(150 CAPS) EXTENDED RELEASE
  13. NEXIUM [Concomitant]
     Dosage: 40MG DELAYED RELEASE CAPS 1DF:1 CAPS
  14. PRAVACHOL [Concomitant]
     Dosage: 1DF:1 TABS(10 MG)

REACTIONS (1)
  - INFLUENZA [None]
